FAERS Safety Report 6904220-3 (Version None)
Quarter: 2010Q3

REPORT INFORMATION
  Report Type: 
  Country: None (occurrence: None)
  Receive Date: 20100804
  Receipt Date: 20090326
  Transmission Date: 20110219
  Serious: Yes (Other)
  Sender: FDA-Public Use
  Company Number: US-PFIZER INC-2009190509

PATIENT
  Sex: Female
  Weight: 72.562 kg

DRUGS (9)
  1. LYRICA [Suspect]
     Indication: FIBROMYALGIA
     Dosage: 25 MG, 2X/DAY
     Dates: start: 20090116
  2. LYRICA [Suspect]
     Indication: CHRONIC FATIGUE SYNDROME
  3. KLONOPIN [Suspect]
     Dosage: FREQUENCY: EVERYDAY;
  4. TRANXENE [Concomitant]
     Dosage: UNK
  5. ESTROGEN NOS [Concomitant]
     Dosage: UNK
  6. ZANAFLEX [Concomitant]
  7. CALCIUM [Concomitant]
     Dosage: UNK
  8. WELLBUTRIN SR [Concomitant]
     Dosage: UNK
  9. ALLEGRA D 24 HOUR [Concomitant]
     Dosage: UNK

REACTIONS (9)
  - ABDOMINAL DISTENSION [None]
  - DRY MOUTH [None]
  - DRY SKIN [None]
  - FLUID RETENTION [None]
  - INCREASED APPETITE [None]
  - PRURITUS [None]
  - SOMNOLENCE [None]
  - SWELLING [None]
  - WEIGHT DECREASED [None]
